FAERS Safety Report 16535519 (Version 17)
Quarter: 2024Q4

REPORT INFORMATION
  Report Type: Spontaneous
  Country: US (occurrence: US)
  Receive Date: 20190705
  Receipt Date: 20241217
  Transmission Date: 20250114
  Serious: Yes (Other)
  Sender: PFIZER
  Company Number: US-PFIZER INC-2019282842

PATIENT
  Age: 66 Year
  Sex: Female

DRUGS (14)
  1. SOMAVERT [Suspect]
     Active Substance: PEGVISOMANT
     Indication: Acromegaly
     Dosage: 10 MG, DAILY
     Route: 058
     Dates: start: 201902
  2. SOMAVERT [Suspect]
     Active Substance: PEGVISOMANT
     Indication: Gigantism
     Dosage: 10 MG, 2X/WEEK
     Route: 058
     Dates: start: 201904
  3. SOMAVERT [Suspect]
     Active Substance: PEGVISOMANT
     Dosage: 10 MG , 3 DAYS A WEEK ( 3 TIMES A WEEK )
     Route: 058
     Dates: start: 201910
  4. SOMAVERT [Suspect]
     Active Substance: PEGVISOMANT
     Dosage: 10 MG (INJECTION ONCE THREE TIMES A WEEK)
     Route: 058
  5. SOMAVERT [Suspect]
     Active Substance: PEGVISOMANT
     Dosage: UNK, ONCE DAILY
     Route: 058
  6. SOMAVERT [Suspect]
     Active Substance: PEGVISOMANT
     Dosage: UNK, 2X/WEEK
     Route: 058
  7. SOMAVERT [Suspect]
     Active Substance: PEGVISOMANT
     Dosage: 10 MG, 4 TIMES A WEEK
     Route: 058
  8. SOMAVERT [Suspect]
     Active Substance: PEGVISOMANT
     Dosage: UNK (DECREASING DOSING FREQUENCY)
  9. SOMAVERT [Suspect]
     Active Substance: PEGVISOMANT
     Dosage: 10 MG, 1X/DAY
     Route: 058
     Dates: start: 201903, end: 201907
  10. SOMAVERT [Suspect]
     Active Substance: PEGVISOMANT
     Dosage: UNK UNK, 2X/WEEK
     Dates: start: 201907, end: 201910
  11. SOMAVERT [Suspect]
     Active Substance: PEGVISOMANT
     Dosage: 10 MG (3 TIMES A WEEK/ 3 DAYS A WEEK)
     Dates: start: 201904
  12. SOMAVERT [Suspect]
     Active Substance: PEGVISOMANT
     Dosage: 15 MG DAILY
  13. SOMAVERT [Suspect]
     Active Substance: PEGVISOMANT
     Dosage: INJECT 15MG UNDER THE SKIN IN THE MORNING
     Route: 058
  14. SANDOSTATIN LAR DEPOT [Concomitant]
     Active Substance: OCTREOTIDE ACETATE
     Indication: Acromegaly
     Dosage: 30 MG, MONTHLY (EVERY FOUR WEEKS)
     Route: 030
     Dates: start: 201701

REACTIONS (7)
  - Hip surgery [Unknown]
  - Insulin-like growth factor increased [Unknown]
  - Arthralgia [Unknown]
  - Lipohypertrophy [Not Recovered/Not Resolved]
  - Visual pathway disorder [Unknown]
  - Off label use [Unknown]
  - Off label use [Unknown]

NARRATIVE: CASE EVENT DATE: 20190201
